FAERS Safety Report 9522741 (Version 1)
Quarter: 2013Q3

REPORT INFORMATION
  Report Type: Spontaneous
  Country: FR (occurrence: FR)
  Receive Date: 20130913
  Receipt Date: 20130913
  Transmission Date: 20140515
  Serious: Yes (Life-Threatening, Hospitalization)
  Sender: FDA-Public Use
  Company Number: FR-JNJFOC-20130900850

PATIENT
  Age: 16 Year
  Sex: Male

DRUGS (8)
  1. HALDOL [Suspect]
     Indication: ABNORMAL BEHAVIOUR
     Dosage: 2MG/ML, 10 DROPS PER DAY
     Route: 048
     Dates: start: 20130711, end: 20130714
  2. HALDOL [Suspect]
     Indication: ABNORMAL BEHAVIOUR
     Dosage: 2MG/ML 15 DROPS ON EVENING
     Route: 048
     Dates: start: 20130714, end: 20130717
  3. ANAFRANIL [Suspect]
     Indication: PRODUCT USED FOR UNKNOWN INDICATION
     Route: 048
  4. BACLOFENE [Suspect]
     Indication: PRODUCT USED FOR UNKNOWN INDICATION
     Dosage: 0.5-0.5-0.5
     Route: 048
  5. MODOPAR [Suspect]
     Indication: PRODUCT USED FOR UNKNOWN INDICATION
     Dosage: (100MG/25MG) 125 MG TWICE DAILY
     Route: 048
     Dates: end: 20130711
  6. MODOPAR [Suspect]
     Indication: PRODUCT USED FOR UNKNOWN INDICATION
     Route: 048
     Dates: end: 20130716
  7. ATARAX [Concomitant]
     Indication: PRODUCT USED FOR UNKNOWN INDICATION
     Route: 065
  8. MELATONIN [Concomitant]
     Indication: PRODUCT USED FOR UNKNOWN INDICATION
     Route: 065

REACTIONS (9)
  - Neuroleptic malignant syndrome [Recovering/Resolving]
  - Extrapyramidal disorder [Unknown]
  - Anaemia [Recovering/Resolving]
  - Staphylococcal bacteraemia [Recovering/Resolving]
  - Systemic inflammatory response syndrome [Recovering/Resolving]
  - Lung disorder [Recovering/Resolving]
  - Hypophagia [Unknown]
  - Dehydration [Recovering/Resolving]
  - Weight decreased [Unknown]
